FAERS Safety Report 12493660 (Version 9)
Quarter: 2016Q4

REPORT INFORMATION
  Report Type: Spontaneous
  Country: US (occurrence: US)
  Receive Date: 20160623
  Receipt Date: 20161223
  Transmission Date: 20170207
  Serious: Yes (Hospitalization, Other)
  Sender: FDA-Public Use
  Company Number: US-GLAXOSMITHKLINE-US2016GSK083028

PATIENT
  Sex: Female
  Weight: 94.35 kg

DRUGS (19)
  1. ADVAIR HFA [Suspect]
     Active Substance: FLUTICASONE PROPIONATE\SALMETEROL XINAFOATE
     Indication: ASTHMA
     Dosage: UNK
  2. NASONEX [Concomitant]
     Active Substance: MOMETASONE FUROATE
  3. PROAIR HFA [Suspect]
     Active Substance: ALBUTEROL SULFATE
     Indication: CHRONIC OBSTRUCTIVE PULMONARY DISEASE
     Dosage: UNK UNK, PRN
     Dates: start: 2005
  4. LYRICA [Suspect]
     Active Substance: PREGABALIN
     Indication: FIBROMYALGIA
     Dosage: 50 MG, TID
  5. RELPAX [Suspect]
     Active Substance: ELETRIPTAN HYDROBROMIDE
     Indication: MIGRAINE
     Dosage: 40 MG, PRN
     Route: 048
  6. OXYGEN. [Concomitant]
     Active Substance: OXYGEN
  7. DULOXETINE. [Concomitant]
     Active Substance: DULOXETINE
  8. LISINOPRIL. [Concomitant]
     Active Substance: LISINOPRIL
  9. ADVAIR HFA [Suspect]
     Active Substance: FLUTICASONE PROPIONATE\SALMETEROL XINAFOATE
     Indication: CHRONIC OBSTRUCTIVE PULMONARY DISEASE
     Dosage: UNK
     Dates: start: 2006
  10. ZETIA [Concomitant]
     Active Substance: EZETIMIBE
  11. HYDROCODONE/ACETAMINOPHEN [Concomitant]
     Active Substance: ACETAMINOPHEN\HYDROCODONE
  12. METAXALONE. [Concomitant]
     Active Substance: METAXALONE
  13. SYNTHROID [Concomitant]
     Active Substance: LEVOTHYROXINE SODIUM
  14. ADVAIR HFA [Suspect]
     Active Substance: FLUTICASONE PROPIONATE\SALMETEROL XINAFOATE
     Dosage: UNK
  15. ADVAIR HFA [Suspect]
     Active Substance: FLUTICASONE PROPIONATE\SALMETEROL XINAFOATE
     Dosage: 1 PUFF(S), QD
  16. CLONAZEPAM. [Concomitant]
     Active Substance: CLONAZEPAM
  17. LYRICA [Suspect]
     Active Substance: PREGABALIN
     Indication: NEUROPATHY PERIPHERAL
  18. ADVAIR HFA [Suspect]
     Active Substance: FLUTICASONE PROPIONATE\SALMETEROL XINAFOATE
     Dosage: UNK UNK, BID
  19. ALBUTEROL. [Suspect]
     Active Substance: ALBUTEROL
     Indication: PRODUCT USED FOR UNKNOWN INDICATION
     Dosage: UNK

REACTIONS (28)
  - Diaphragmatic paralysis [Unknown]
  - Hernia [Unknown]
  - Inability to afford medication [Unknown]
  - Therapeutic response unexpected [Unknown]
  - Apparent death [Recovered/Resolved]
  - Biopsy cervix [Unknown]
  - Dyspnoea [Unknown]
  - Expired product administered [Not Recovered/Not Resolved]
  - Oxygen saturation decreased [Unknown]
  - Pneumonia [Recovered/Resolved]
  - Diaphragmatic disorder [Unknown]
  - Intentional product misuse [Unknown]
  - Gastrooesophageal reflux disease [Unknown]
  - Chest injury [Unknown]
  - Hospitalisation [Unknown]
  - Choking [Unknown]
  - Psychomotor hyperactivity [Not Recovered/Not Resolved]
  - Streptococcal sepsis [Recovered/Resolved]
  - Dialysis [Recovered/Resolved]
  - Hiatus hernia [Unknown]
  - Gastric operation [Unknown]
  - Hernia hiatus repair [Unknown]
  - Oesophageal operation [Unknown]
  - Gastrointestinal disorder [Unknown]
  - Renal failure [Recovered/Resolved]
  - Tonsillar disorder [Unknown]
  - Drug dose omission [Unknown]
  - Musculoskeletal chest pain [Unknown]

NARRATIVE: CASE EVENT DATE: 2010
